FAERS Safety Report 16313679 (Version 22)
Quarter: 2021Q3

REPORT INFORMATION
  Report Type: Spontaneous
  Country: US (occurrence: US)
  Receive Date: 20190515
  Receipt Date: 20210921
  Transmission Date: 20211014
  Serious: No
  Sender: FDA-Public Use
  Company Number: US-PFIZER INC-2017536293

PATIENT
  Age: 60 Year
  Sex: Female
  Weight: 172 kg

DRUGS (2)
  1. TOVIAZ [Suspect]
     Active Substance: FESOTERODINE FUMARATE
     Indication: URINARY INCONTINENCE
     Dosage: 8 MG, 1X/DAY (MORNING)
     Route: 048
  2. TOVIAZ [Suspect]
     Active Substance: FESOTERODINE FUMARATE
     Dosage: 8 MG, 2X/DAY, (MORNING AND BY THE NIGHT)
     Route: 048
     Dates: start: 2017, end: 202103

REACTIONS (6)
  - Therapeutic product effect incomplete [Unknown]
  - Off label use [Unknown]
  - Housebound [Unknown]
  - Nausea [Unknown]
  - Gait inability [Unknown]
  - Feeling abnormal [Unknown]

NARRATIVE: CASE EVENT DATE: 2017
